FAERS Safety Report 8513663-6 (Version None)
Quarter: 2012Q3

REPORT INFORMATION
  Report Type: 
  Country: None (occurrence: None)
  Receive Date: 20120717
  Receipt Date: 20120715
  Transmission Date: 20120928
  Serious: No
  Sender: FDA-Public Use
  Company Number: US-PFIZER INC-2012170128

PATIENT
  Sex: Male
  Weight: 74.83 kg

DRUGS (1)
  1. CELEBREX [Suspect]
     Indication: MUSCULOSKELETAL DISCOMFORT
     Dosage: 200 MG, DAILY
     Route: 048
     Dates: start: 20120701, end: 20120701

REACTIONS (1)
  - DIARRHOEA [None]
